FAERS Safety Report 12298816 (Version 4)
Quarter: 2017Q3

REPORT INFORMATION
  Report Type: Report from Study
  Country: DE (occurrence: DE)
  Receive Date: 20160425
  Receipt Date: 20170731
  Transmission Date: 20171127
  Serious: Yes (Death, Hospitalization)
  Sender: FDA-Public Use
  Company Number: DE-ROCHE-1745348

PATIENT
  Age: 63 Year
  Sex: Male

DRUGS (13)
  1. LEFLUNOMID [Suspect]
     Active Substance: LEFLUNOMIDE
     Route: 065
  2. RITUXIMAB. [Suspect]
     Active Substance: RITUXIMAB
     Dosage: ON 01/DEC/2015, RECEIVED LAST DOSE PRIOR TO EVENT
     Route: 042
     Dates: start: 201409
  3. RITUXIMAB. [Suspect]
     Active Substance: RITUXIMAB
     Indication: RHEUMATOID ARTHRITIS
     Dosage: ON 01/DEC/2015, RECEIVED LAST DOSE PRIOR TO EVENT
     Route: 042
     Dates: start: 201308
  4. LEFLUNOMID [Suspect]
     Active Substance: LEFLUNOMIDE
     Indication: PRODUCT USED FOR UNKNOWN INDICATION
     Route: 065
  5. PREDNISOLON [Concomitant]
     Active Substance: PREDNISOLONE
  6. DEKRISTOL [Concomitant]
     Active Substance: CHOLECALCIFEROL
  7. ASPIRIN. [Concomitant]
     Active Substance: ASPIRIN
  8. NEBILET [Concomitant]
     Active Substance: NEBIVOLOL
  9. RITUXIMAB. [Suspect]
     Active Substance: RITUXIMAB
     Dosage: ON 01/DEC/2015, RECEIVED LAST DOSE PRIOR TO EVENT
     Route: 042
     Dates: start: 201504
  10. RITUXIMAB. [Suspect]
     Active Substance: RITUXIMAB
     Dosage: ON 01/DEC/2015, RECEIVED LAST DOSE PRIOR TO EVENT
     Route: 042
     Dates: start: 201512
  11. RITUXIMAB. [Suspect]
     Active Substance: RITUXIMAB
     Dosage: ON 01/DEC/2015, RECEIVED LAST DOSE PRIOR TO EVENT
     Route: 042
     Dates: start: 201403
  12. PANTOZOL [Concomitant]
     Active Substance: PANTOPRAZOLE SODIUM
  13. LOSARTAN. [Concomitant]
     Active Substance: LOSARTAN

REACTIONS (6)
  - Pneumonia [Fatal]
  - Colon cancer [Recovered/Resolved]
  - Postoperative wound infection [Unknown]
  - Pulmonary mass [Unknown]
  - Pulmonary sepsis [Fatal]
  - Colon cancer metastatic [Fatal]

NARRATIVE: CASE EVENT DATE: 201601
